FAERS Safety Report 7550869-7 (Version None)
Quarter: 2011Q2

REPORT INFORMATION
  Report Type: 
  Country: None (occurrence: None)
  Receive Date: 20110616
  Receipt Date: 20110615
  Transmission Date: 20111010
  Serious: Yes (Other)
  Sender: FDA-Public Use
  Company Number: US-PFIZER INC-2011131538

PATIENT
  Sex: Female
  Weight: 43.537 kg

DRUGS (1)
  1. CHANTIX [Suspect]
     Dosage: UNK

REACTIONS (7)
  - LOSS OF CONSCIOUSNESS [None]
  - VOMITING [None]
  - TREMOR [None]
  - SOMNOLENCE [None]
  - DIZZINESS [None]
  - MALAISE [None]
  - FALL [None]
